FAERS Safety Report 16302965 (Version 1)
Quarter: 2019Q2

REPORT INFORMATION
  Report Type: Spontaneous
  Country: US (occurrence: US)
  Receive Date: 20190405
  Receipt Date: 20190405
  Transmission Date: 20190711
  Serious: No
  Sender: FDA-Public Use
  Company Number: None

PATIENT
  Age: 65 Year
  Sex: Male
  Weight: 88.45 kg

DRUGS (4)
  1. LIPITOR [Concomitant]
     Active Substance: ATORVASTATIN CALCIUM
  2. DIOVAN [Concomitant]
     Active Substance: VALSARTAN
  3. ASPIRIN. [Concomitant]
     Active Substance: ASPIRIN
  4. MODAFINIL. [Suspect]
     Active Substance: MODAFINIL
     Dosage: ?          QUANTITY:1 PILL;?
     Route: 048
     Dates: end: 20190303

REACTIONS (1)
  - Chest pain [None]

NARRATIVE: CASE EVENT DATE: 20190101
